FAERS Safety Report 5081572-3 (Version None)
Quarter: 2006Q3

REPORT INFORMATION
  Report Type: 
  Country: None (occurrence: None)
  Receive Date: 20060811
  Receipt Date: 20060728
  Transmission Date: 20061208
  Serious: Yes (Hospitalization)
  Sender: FDA-Public Use
  Company Number: A-US2006-12716

PATIENT
  Age: 81 Year
  Sex: Male

DRUGS (20)
  1. TRACLEER [Suspect]
     Indication: PULMONARY HYPERTENSION
     Dosage: 125 MG, BID, ORAL; SEE IMAGE
     Route: 048
     Dates: start: 20051117, end: 20051216
  2. TRACLEER [Suspect]
     Indication: PULMONARY HYPERTENSION
     Dosage: 125 MG, BID, ORAL; SEE IMAGE
     Route: 048
     Dates: start: 20051217, end: 20060722
  3. NAPROSYN [Concomitant]
  4. COUMADIN [Concomitant]
  5. ASPIRIN [Concomitant]
  6. PRAVACHOL [Concomitant]
  7. GARLIC (GARLIC) [Concomitant]
  8. KCL TAB [Concomitant]
  9. COENZYME A (COENZYME A) [Concomitant]
  10. ASCORBIC ACID [Concomitant]
  11. SELENIUM (SELENIUM) [Concomitant]
  12. VITAMIN B COMPLEX CAP [Concomitant]
  13. SAW PALMETTO (SERENOA REPENS) [Concomitant]
  14. FISH OIL (FISH OIL) [Concomitant]
  15. GINKGO BILOBA (GINKGO BILOBA) [Concomitant]
  16. VITAMIN E [Concomitant]
  17. CAL MAX [Concomitant]
  18. ALTACE [Concomitant]
  19. SILDENAFIL CITRATE [Concomitant]
  20. DIGOXIN [Concomitant]

REACTIONS (9)
  - ALANINE AMINOTRANSFERASE INCREASED [None]
  - ASPARTATE AMINOTRANSFERASE INCREASED [None]
  - ATRIAL FIBRILLATION [None]
  - BLOOD ALKALINE PHOSPHATASE INCREASED [None]
  - BLOOD BILIRUBIN INCREASED [None]
  - BONE MARROW FAILURE [None]
  - HAEMOPTYSIS [None]
  - NASOPHARYNGITIS [None]
  - PANCYTOPENIA [None]
